FAERS Safety Report 14342785 (Version 1)
Quarter: 2017Q4

REPORT INFORMATION
  Report Type: Spontaneous
  Country: US (occurrence: US)
  Receive Date: 20171229
  Receipt Date: 20171229
  Transmission Date: 20180321
  Serious: Yes (Life-Threatening, Disabling)
  Sender: FDA-Public Use
  Company Number: None

PATIENT
  Age: 77 Year
  Sex: Female
  Weight: 77.4 kg

DRUGS (10)
  1. VITAMIN D2 [Concomitant]
     Active Substance: ERGOCALCIFEROL
  2. VALSARTAN. [Concomitant]
     Active Substance: VALSARTAN
  3. TRAMADOL. [Concomitant]
     Active Substance: TRAMADOL
  4. TYLENOL [Concomitant]
     Active Substance: ACETAMINOPHEN
  5. ALEVE [Concomitant]
     Active Substance: NAPROXEN SODIUM
  6. TRASTUZUMAB. [Concomitant]
     Active Substance: TRASTUZUMAB
  7. PACLITAXEL. [Concomitant]
     Active Substance: PACLITAXEL
  8. VOLTAREN [Concomitant]
     Active Substance: DICLOFENAC SODIUM
  9. JANUVIA [Suspect]
     Active Substance: SITAGLIPTIN PHOSPHATE
     Indication: DIABETES MELLITUS
     Dosage: ?          QUANTITY:30 TABLET(S);?
     Route: 048
  10. PERTUZUMAB. [Concomitant]
     Active Substance: PERTUZUMAB

REACTIONS (3)
  - Metastases to lymph nodes [None]
  - Inflammatory carcinoma of the breast [None]
  - Metastases to liver [None]

NARRATIVE: CASE EVENT DATE: 20171128
